FAERS Safety Report 17681145 (Version 7)
Quarter: 2021Q1

REPORT INFORMATION
  Report Type: Spontaneous
  Country: US (occurrence: US)
  Receive Date: 20200417
  Receipt Date: 20210126
  Transmission Date: 20210419
  Serious: Yes (Hospitalization, Other)
  Sender: FDA-Public Use
  Company Number: US-GLAXOSMITHKLINE-US2020AMR046624

PATIENT
  Sex: Female
  Weight: 52 kg

DRUGS (7)
  1. ZEJULA [Suspect]
     Active Substance: NIRAPARIB
     Dosage: 100 MG, QD
     Dates: start: 20201122
  2. STIMUL [Concomitant]
     Indication: PRODUCT USED FOR UNKNOWN INDICATION
     Dosage: UNK
  3. ZEJULA [Suspect]
     Active Substance: NIRAPARIB
     Indication: OVARIAN CANCER
     Dosage: 300 MG, DAILY
     Dates: start: 20200305
  4. ZEJULA [Suspect]
     Active Substance: NIRAPARIB
     Dosage: 100 MG, QD
  5. ZEJULA [Suspect]
     Active Substance: NIRAPARIB
     Dosage: 100 MG, QD
  6. ZEJULA [Suspect]
     Active Substance: NIRAPARIB
     Dosage: 100 MG, QD
  7. ZEJULA [Suspect]
     Active Substance: NIRAPARIB
     Dosage: 300 MG, QD
     Dates: end: 20200327

REACTIONS (10)
  - White blood cell count decreased [Unknown]
  - Tinnitus [Unknown]
  - Wound infection [Unknown]
  - Platelet count decreased [Not Recovered/Not Resolved]
  - Colostomy [Unknown]
  - Immune system disorder [Unknown]
  - Insomnia [Not Recovered/Not Resolved]
  - Blood count abnormal [Unknown]
  - Sleep disorder [Recovered/Resolved]
  - Blood pressure increased [Not Recovered/Not Resolved]
